FAERS Safety Report 13662903 (Version 2)
Quarter: 2017Q3

REPORT INFORMATION
  Report Type: Report from Study
  Country: US (occurrence: US)
  Receive Date: 20170619
  Receipt Date: 20170824
  Transmission Date: 20171127
  Serious: No
  Sender: FDA-Public Use
  Company Number: PHHY2017US087819

PATIENT
  Age: 40 Year
  Sex: Female

DRUGS (1)
  1. GILENYA [Suspect]
     Active Substance: FINGOLIMOD HYDROCHLORIDE
     Indication: MULTIPLE SCLEROSIS
     Dosage: UNK UNK, QD
     Route: 048

REACTIONS (17)
  - Alanine aminotransferase increased [Unknown]
  - Upper respiratory tract infection [Recovered/Resolved]
  - Burning sensation [Unknown]
  - Arthralgia [Unknown]
  - Myalgia [Unknown]
  - Neuralgia [Unknown]
  - Head discomfort [Unknown]
  - Vision blurred [Recovered/Resolved]
  - Sinusitis [Recovered/Resolved]
  - White blood cell count decreased [Unknown]
  - Altered visual depth perception [Unknown]
  - Paraesthesia [Recovered/Resolved]
  - Blood alkaline phosphatase increased [Recovered/Resolved]
  - Alanine aminotransferase increased [Recovered/Resolved]
  - Headache [Unknown]
  - Oral herpes [Unknown]
  - Muscle spasms [Unknown]

NARRATIVE: CASE EVENT DATE: 20161123
